FAERS Safety Report 25637535 (Version 3)
Quarter: 2025Q3

REPORT INFORMATION
  Report Type: Report from Study
  Country: CN (occurrence: CN)
  Receive Date: 20250804
  Receipt Date: 20250923
  Transmission Date: 20251020
  Serious: Yes (Life-Threatening)
  Sender: ROCHE
  Company Number: CN-ROCHE-10000353593

PATIENT
  Age: 48 Year
  Sex: Female
  Weight: 58 kg

DRUGS (53)
  1. RITUXIMAB [Suspect]
     Active Substance: RITUXIMAB
     Indication: Diffuse large B-cell lymphoma
     Route: 042
     Dates: start: 20240612, end: 20240613
  2. POLATUZUMAB VEDOTIN [Suspect]
     Active Substance: POLATUZUMAB VEDOTIN
     Indication: Diffuse large B-cell lymphoma
     Route: 042
     Dates: start: 20240613, end: 20240613
  3. CYCLOPHOSPHAMIDE [Suspect]
     Active Substance: CYCLOPHOSPHAMIDE
     Indication: Diffuse large B-cell lymphoma
     Route: 042
     Dates: start: 20241106, end: 20241106
  4. CYCLOPHOSPHAMIDE [Suspect]
     Active Substance: CYCLOPHOSPHAMIDE
     Route: 042
     Dates: start: 20240613, end: 20240614
  5. METHYLPREDNISOLONE [Suspect]
     Active Substance: METHYLPREDNISOLONE
     Indication: Diffuse large B-cell lymphoma
     Route: 042
     Dates: start: 20240608, end: 20240612
  6. EPIRUBICIN HYDROCHLORIDE [Suspect]
     Active Substance: EPIRUBICIN HYDROCHLORIDE
     Indication: Diffuse large B-cell lymphoma
     Route: 042
     Dates: start: 20240613, end: 20240614
  7. RITUXIMAB [Suspect]
     Active Substance: RITUXIMAB
     Indication: Diffuse large B-cell lymphoma
     Route: 042
     Dates: start: 20241105, end: 20241105
  8. ETOPOSIDE [Suspect]
     Active Substance: ETOPOSIDE
     Indication: Diffuse large B-cell lymphoma
     Route: 042
     Dates: start: 20241106, end: 20241106
  9. VINCRISTINE [Suspect]
     Active Substance: VINCRISTINE
     Indication: Diffuse large B-cell lymphoma
     Route: 042
     Dates: start: 20241109, end: 20241109
  10. EPIRUBICIN [Suspect]
     Active Substance: EPIRUBICIN
     Indication: Diffuse large B-cell lymphoma
     Route: 042
     Dates: start: 20241109, end: 20241109
  11. DEXAMETHASONE [Suspect]
     Active Substance: DEXAMETHASONE
     Indication: Diffuse large B-cell lymphoma
     Route: 042
     Dates: start: 20241106, end: 20241110
  12. ZANUBRUTINIB [Suspect]
     Active Substance: ZANUBRUTINIB
     Indication: Diffuse large B-cell lymphoma
     Route: 048
     Dates: start: 20241106, end: 20241202
  13. ENTECAVIR [Concomitant]
     Active Substance: ENTECAVIR
  14. SULFAMETHOXAZOLE [Concomitant]
     Active Substance: SULFAMETHOXAZOLE
  15. ACYCLOVIR [Concomitant]
     Active Substance: ACYCLOVIR
  16. LEUCOGEN [Concomitant]
     Active Substance: LEUCOGEN
  17. CALCIUM CARBONATE\CHOLECALCIFEROL [Concomitant]
     Active Substance: CALCIUM CARBONATE\CHOLECALCIFEROL
  18. METRONIDAZOLE [Concomitant]
     Active Substance: METRONIDAZOLE
  19. LEVOFLOXACIN [Concomitant]
     Active Substance: LEVOFLOXACIN
  20. Drospirenone and ethinylestradiol [Concomitant]
  21. FLUCONAZOLE [Concomitant]
     Active Substance: FLUCONAZOLE
  22. ALPROSTADIL [Concomitant]
     Active Substance: ALPROSTADIL
  23. FUROSEMIDE [Concomitant]
     Active Substance: FUROSEMIDE
  24. TORSEMIDE [Concomitant]
     Active Substance: TORSEMIDE
  25. POTASSIUM CHLORIDE [Concomitant]
     Active Substance: POTASSIUM CHLORIDE
  26. OMEPRAZOLE [Concomitant]
     Active Substance: OMEPRAZOLE
  27. ONDANSETRON HYDROCHLORIDE [Concomitant]
     Active Substance: ONDANSETRON HYDROCHLORIDE
  28. SEMUSTINE [Concomitant]
     Active Substance: SEMUSTINE
  29. MAGNESIUM ISOGLYCYRRHIZINATE [Concomitant]
     Active Substance: MAGNESIUM ISOGLYCYRRHIZINATE
  30. DEXAMETHASONE SODIUM PHOSPHATE [Concomitant]
     Active Substance: DEXAMETHASONE SODIUM PHOSPHATE
  31. CYTARABINE HYDROCHLORIDE [Concomitant]
     Active Substance: CYTARABINE HYDROCHLORIDE
  32. ETOPOSIDE [Concomitant]
     Active Substance: ETOPOSIDE
  33. MONTMORILLONITE [Concomitant]
     Active Substance: MONTMORILLONITE
  34. BERBERINE [Concomitant]
     Active Substance: BERBERINE
  35. LOPERAMIDE HYDROCHLORIDE [Concomitant]
     Active Substance: LOPERAMIDE HYDROCHLORIDE
  36. OCTREOTIDE ACETATE [Concomitant]
     Active Substance: OCTREOTIDE ACETATE
  37. SUCRALFATE [Concomitant]
     Active Substance: SUCRALFATE
  38. BATROXOBIN [Concomitant]
     Active Substance: BATROXOBIN
  39. MEROPENEM [Concomitant]
     Active Substance: MEROPENEM
  40. Succoinylated Gelatin [Concomitant]
  41. ACETYLCYSTEINE [Concomitant]
     Active Substance: ACETYLCYSTEINE
  42. AVATROMBOPAG [Concomitant]
     Active Substance: AVATROMBOPAG
  43. LEVOFLOXACIN [Concomitant]
     Active Substance: LEVOFLOXACIN
  44. CASPOFUNGIN ACETATE [Concomitant]
     Active Substance: CASPOFUNGIN ACETATE
  45. Lyophilizing Thrombin [Concomitant]
  46. INSULIN HUMAN [Concomitant]
     Active Substance: INSULIN HUMAN
  47. Cefoperazone sulbactam sodium [Concomitant]
     Indication: Antibiotic prophylaxis
     Route: 042
     Dates: start: 20250120, end: 20250127
  48. ESOMEPRAZOLE SODIUM [Concomitant]
     Active Substance: ESOMEPRAZOLE SODIUM
  49. AMINOPHYLLINE\CHLORPHENIRAMINE MALEATE\METHOXYPHENAMINE HYDROCHLORIDE\ [Concomitant]
     Active Substance: AMINOPHYLLINE\CHLORPHENIRAMINE MALEATE\METHOXYPHENAMINE HYDROCHLORIDE\NOSCAPINE
  50. PROMETHAZINE HYDROCHLORIDE [Concomitant]
     Active Substance: PROMETHAZINE HYDROCHLORIDE
  51. IBUPROFEN [Concomitant]
     Active Substance: IBUPROFEN
  52. ROXITHROMYCIN [Concomitant]
     Active Substance: ROXITHROMYCIN
  53. CETIRIZINE HYDROCHLORIDE [Concomitant]
     Active Substance: CETIRIZINE HYDROCHLORIDE

REACTIONS (1)
  - Myelosuppression [Recovered/Resolved]

NARRATIVE: CASE EVENT DATE: 20241113
